FAERS Safety Report 18870623 (Version 2)
Quarter: 2021Q1

REPORT INFORMATION
  Report Type: Spontaneous
  Country: US (occurrence: US)
  Receive Date: 20210210
  Receipt Date: 20210312
  Transmission Date: 20210420
  Serious: No
  Sender: FDA-Public Use
  Company Number: US-SA-2021SA038402

PATIENT
  Sex: Female

DRUGS (1)
  1. DUPIXENT [Suspect]
     Active Substance: DUPILUMAB
     Indication: NASAL POLYPS
     Dosage: 300 MG, QOW
     Route: 058
     Dates: start: 20200630

REACTIONS (6)
  - Weight increased [Unknown]
  - Dry skin [Unknown]
  - Fluid retention [Unknown]
  - Apathy [Unknown]
  - Headache [Unknown]
  - Depression [Unknown]

NARRATIVE: CASE EVENT DATE: 202101
